FAERS Safety Report 14693324 (Version 1)
Quarter: 2018Q1

REPORT INFORMATION
  Report Type: Report from Study
  Country: IT (occurrence: IT)
  Receive Date: 20180329
  Receipt Date: 20180329
  Transmission Date: 20180509
  Serious: Yes (Other)
  Sender: FDA-Public Use
  Company Number: PHHY2018IT051930

PATIENT
  Sex: Male

DRUGS (2)
  1. GILENYA [Suspect]
     Active Substance: FINGOLIMOD HYDROCHLORIDE
     Indication: PRODUCT USED FOR UNKNOWN INDICATION
     Dosage: UNK
     Route: 065
     Dates: start: 20140225
  2. GILENYA [Suspect]
     Active Substance: FINGOLIMOD HYDROCHLORIDE
     Dosage: UNK
     Route: 065
     Dates: start: 201502

REACTIONS (12)
  - Sensory loss [Unknown]
  - Lymphopenia [Unknown]
  - Asthenia [Unknown]
  - Hyperpyrexia [Recovered/Resolved]
  - Paraesthesia [Unknown]
  - Motor dysfunction [Unknown]
  - Dysaesthesia [Unknown]
  - Productive cough [Recovered/Resolved]
  - Coordination abnormal [Unknown]
  - Lung disorder [Recovered/Resolved]
  - Weight decreased [Unknown]
  - Liver function test increased [Not Recovered/Not Resolved]

NARRATIVE: CASE EVENT DATE: 201411
